FAERS Safety Report 15255780 (Version 1)
Quarter: 2018Q3

REPORT INFORMATION
  Report Type: Spontaneous
  Country: US (occurrence: US)
  Receive Date: 20180718
  Receipt Date: 20180718
  Transmission Date: 20181010
  Serious: Yes (Life-Threatening, Hospitalization)
  Sender: FDA-Public Use
  Company Number: None

PATIENT
  Age: 27 Year
  Sex: Female
  Weight: 54 kg

DRUGS (8)
  1. SOEOROQUEL [Concomitant]
  2. VISTARIL [Concomitant]
     Active Substance: HYDROXYZINE PAMOATE
  3. PRAZOZIN [Concomitant]
  4. DOXEPIN [Concomitant]
     Active Substance: DOXEPIN
  5. BELSOMRA [Suspect]
     Active Substance: SUVOREXANT
     Indication: INSOMNIA
     Route: 048
     Dates: start: 20180207, end: 20180212
  6. BELSOMRA [Suspect]
     Active Substance: SUVOREXANT
     Indication: DEPRESSION
     Route: 048
     Dates: start: 20180207, end: 20180212
  7. FETZIMA [Concomitant]
     Active Substance: LEVOMILNACIPRAN HYDROCHLORIDE
  8. METOPROLOL SUCC XR [Concomitant]

REACTIONS (4)
  - Agitation [None]
  - Suicide attempt [None]
  - Irritability [None]
  - Suicidal ideation [None]

NARRATIVE: CASE EVENT DATE: 20180212
